FAERS Safety Report 8440913-7 (Version None)
Quarter: 2012Q2

REPORT INFORMATION
  Report Type: 
  Country: None (occurrence: None)
  Receive Date: 20120615
  Receipt Date: 20120611
  Transmission Date: 20120825
  Serious: Yes (Other)
  Sender: FDA-Public Use
  Company Number: US-CELGENEUS-163-21880-11114209

PATIENT
  Sex: Male

DRUGS (4)
  1. DEXAMETHASONE [Concomitant]
     Route: 065
  2. REVLIMID [Suspect]
     Dosage: 25 MILLIGRAM
     Route: 048
     Dates: start: 20111116
  3. ASPIRIN [Concomitant]
     Route: 065
  4. CRESTOR [Concomitant]
     Route: 065

REACTIONS (3)
  - BRONCHITIS [None]
  - NON-SMALL CELL LUNG CANCER [None]
  - UPPER RESPIRATORY TRACT INFECTION [None]
